FAERS Safety Report 5228100-7 (Version None)
Quarter: 2007Q1

REPORT INFORMATION
  Report Type: 
  Country: None (occurrence: None)
  Receive Date: 20070130
  Receipt Date: 20070127
  Transmission Date: 20070707
  Serious: Yes (Hospitalization, Other)
  Sender: FDA-Public Use
  Company Number: 230445

PATIENT
  Age: 55 Year
  Sex: Male

DRUGS (1)
  1. RAPTIVA [Suspect]
     Indication: PSORIASIS
     Dosage: 0.142 ML/KG, 1/WEEK, SUBCUTANEOUS
     Route: 058
     Dates: start: 20060608, end: 20060905

REACTIONS (9)
  - ASTHENIA [None]
  - BODY TEMPERATURE INCREASED [None]
  - C-REACTIVE PROTEIN INCREASED [None]
  - COLON CANCER [None]
  - COUGH [None]
  - FATIGUE [None]
  - HYPOCHROMIC ANAEMIA [None]
  - MYALGIA [None]
  - WEIGHT DECREASED [None]
